FAERS Safety Report 10169052 (Version 1)
Quarter: 2014Q2

REPORT INFORMATION
  Report Type: Spontaneous
  Country: US (occurrence: None)
  Receive Date: 20140509
  Receipt Date: 20140509
  Transmission Date: 20141212
  Serious: Yes (Hospitalization)
  Sender: FDA-Public Use
  Company Number: UTC-048287

PATIENT
  Age: 49 Year
  Sex: Female

DRUGS (16)
  1. TYVASO [Suspect]
     Indication: PULMONARY ARTERIAL HYPERTENSION
     Dosage: 36 MCG
     Route: 055
     Dates: start: 20140319, end: 20140424
  2. TRAZODONE [Concomitant]
  3. IRON [Concomitant]
  4. PRADAXA (DABIGATRAN) [Concomitant]
  5. CYMBALTA [Concomitant]
  6. BYDUREON (EXENATIDE) [Concomitant]
  7. ZOLPIDEM [Concomitant]
  8. VICTOZA (LIRAGLUTIDE) [Concomitant]
  9. ASA (ACETYLSALICYLIC ACID) [Concomitant]
  10. METOLAZONE [Concomitant]
  11. BUMETANIDE [Concomitant]
  12. SIMVASTATIN [Concomitant]
  13. NIASPAN (NICOTINIC ACID) [Concomitant]
  14. PANTOPRAZOLE SODIUM [Concomitant]
  15. SPIRONOLACTONE [Concomitant]
  16. ISOSORBIDE [Concomitant]

REACTIONS (3)
  - Cough [None]
  - Dyspnoea [None]
  - Chest discomfort [None]
